FAERS Safety Report 4330464-3 (Version None)
Quarter: 2004Q1

REPORT INFORMATION
  Report Type: 
  Country: None (occurrence: None)
  Receive Date: 20040330
  Receipt Date: 20040308
  Transmission Date: 20041129
  Serious: Yes (Hospitalization)
  Sender: FDA-Public Use
  Company Number: JP-JNJFOC-20040301450

PATIENT
  Age: 67 Year
  Sex: Female

DRUGS (15)
  1. REMICADE [Suspect]
     Indication: RHEUMATOID ARTHRITIS
     Dosage: SEE IMAGE
     Route: 041
     Dates: start: 20031016, end: 20031016
  2. REMICADE [Suspect]
     Indication: RHEUMATOID ARTHRITIS
     Dosage: SEE IMAGE
     Route: 041
     Dates: start: 20040121, end: 20040121
  3. REMICADE [Suspect]
     Indication: RHEUMATOID ARTHRITIS
     Dosage: SEE IMAGE
     Route: 041
     Dates: start: 20040204, end: 20040204
  4. METHOTREXATE [Concomitant]
  5. RHEUMATREX [Concomitant]
  6. PREDNISOLONE [Concomitant]
  7. PREDNISOLONE (PREDNISOLONE) POWDER [Concomitant]
  8. CLINORIL (SULINDAC) TABLETS [Concomitant]
  9. FOLIAMIN (FOLIC ACID) TABLETS [Concomitant]
  10. EVOXAC (CEVIMELINE HYDROCHLORIDE) CAPSULES [Concomitant]
  11. LEVOTHYROXINE SODIUM [Concomitant]
  12. GASTER D (FAMOTIDINE) TABLETS [Concomitant]
  13. LASIX [Concomitant]
  14. CERCINE (DIAZEPAM) TABLETS [Concomitant]
  15. ONEALFA (ALFACALCIDOL) TABLETS [Concomitant]

REACTIONS (6)
  - BLOOD ALKALINE PHOSPHATASE INCREASED [None]
  - BLOOD LACTATE DEHYDROGENASE INCREASED [None]
  - PNEUMOCYSTIS CARINII INFECTION [None]
  - PNEUMONIA [None]
  - SPUTUM CULTURE POSITIVE [None]
  - VOMITING [None]
